FAERS Safety Report 7958883-4 (Version None)
Quarter: 2011Q4

REPORT INFORMATION
  Report Type: 
  Country: None (occurrence: None)
  Receive Date: 20111206
  Receipt Date: 20111201
  Transmission Date: 20120403
  Serious: Yes (Other)
  Sender: FDA-Public Use
  Company Number: BR-B.I. PHARMACEUTICALS,INC./RIDGEFIELD-2011-BR-01349BR

PATIENT
  Age: 58 Year
  Sex: Female

DRUGS (9)
  1. DILTIAZEM [Concomitant]
     Indication: ANGINA PECTORIS
  2. VYLIUN [Concomitant]
     Indication: ABDOMINAL DISCOMFORT
  3. CLORIDRATO DE METFORMINA [Concomitant]
     Indication: DIABETES MELLITUS
  4. GRICORP [Concomitant]
     Indication: DIABETES MELLITUS
  5. NERVEN [Concomitant]
     Indication: MUSCLE SPASMS
  6. MAGNEM [Concomitant]
     Indication: OSTEOPOROSIS
  7. ISOSORBIDE MONONITRATE [Concomitant]
     Indication: ANGINA PECTORIS
  8. COMBIVENT [Suspect]
     Indication: ASTHMA
     Route: 055
     Dates: start: 20111101
  9. DUOVENT N [Suspect]
     Indication: ASTHMA
     Route: 055
     Dates: start: 20110801, end: 20111001

REACTIONS (4)
  - COUGH [None]
  - DRUG INEFFECTIVE [None]
  - BLOOD PRESSURE INCREASED [None]
  - DRY MOUTH [None]
